FAERS Safety Report 9153358 (Version 1)
Quarter: 2013Q1

REPORT INFORMATION
  Report Type: Spontaneous
  Country: US (occurrence: None)
  Receive Date: 20130304
  Receipt Date: 20130304
  Transmission Date: 20140127
  Serious: Yes (Hospitalization)
  Sender: FDA-Public Use
  Company Number: None

PATIENT
  Age: 66 Year
  Sex: Male

DRUGS (7)
  1. TIKOSYN [Suspect]
     Indication: ATRIAL FIBRILLATION
     Route: 048
     Dates: start: 20081115, end: 20130220
  2. SIMVASTATIN [Concomitant]
  3. TORSEMIDE [Concomitant]
  4. WELLBUTRIN [Concomitant]
  5. COUMADIN [Concomitant]
  6. POTASSIUM [Concomitant]
  7. METOPROLOL [Concomitant]

REACTIONS (3)
  - Renal impairment [None]
  - Viral infection [None]
  - Liver function test abnormal [None]
